FAERS Safety Report 10311397 (Version 4)
Quarter: 2014Q3

REPORT INFORMATION
  Report Type: Report from Study
  Country: FR (occurrence: FR)
  Receive Date: 20140717
  Receipt Date: 20140828
  Transmission Date: 20150326
  Serious: Yes (Death, Hospitalization)
  Sender: FDA-Public Use
  Company Number: FR-EXELIXIS-XL18414004509

PATIENT
  Age: 67 Year
  Sex: Female
  Weight: 48 kg

DRUGS (8)
  1. LEVOTHROID [Concomitant]
     Active Substance: LEVOTHYROXINE SODIUM
  2. XL184 [Suspect]
     Active Substance: CABOZANTINIB
     Indication: RENAL CELL CARCINOMA
     Dosage: 60 MG, QD
     Route: 048
     Dates: start: 20140605, end: 20140709
  3. SEROPLEX [Concomitant]
     Active Substance: ESCITALOPRAM OXALATE
  4. SKENAN [Concomitant]
     Active Substance: MORPHINE SULFATE
  5. PARACETAMOL [Concomitant]
     Active Substance: ACETAMINOPHEN
  6. LEVOMELS [Concomitant]
  7. ACTISKENAN [Concomitant]
     Active Substance: MORPHINE SULFATE
  8. IMODIUM [Concomitant]
     Active Substance: LOPERAMIDE HYDROCHLORIDE

REACTIONS (7)
  - Renal cancer [Fatal]
  - Thyroxine increased [None]
  - Confusional state [Unknown]
  - Central nervous system necrosis [None]
  - Blood thyroid stimulating hormone decreased [None]
  - Urinary tract infection [None]
  - Meningitis [None]

NARRATIVE: CASE EVENT DATE: 20140703
